FAERS Safety Report 6258402-7 (Version None)
Quarter: 2009Q3

REPORT INFORMATION
  Report Type: 
  Country: None (occurrence: None)
  Receive Date: 20090707
  Receipt Date: 20090625
  Transmission Date: 20100115
  Serious: Yes (Death, Hospitalization)
  Sender: FDA-Public Use
  Company Number: KR-PFIZER INC-2009233202

PATIENT
  Age: 53 Year

DRUGS (6)
  1. VORICONAZOLE [Suspect]
     Indication: ASPERGILLOSIS
     Dosage: 192.2 MG, 2X/DAY
     Route: 042
     Dates: start: 20081121, end: 20081211
  2. IMIPENEM AND CILASTATIN SODIUM [Concomitant]
     Route: 042
     Dates: start: 20081121, end: 20081218
  3. TRAMADOL [Concomitant]
     Route: 042
     Dates: start: 20081101, end: 20081218
  4. TRAMADOL HYDROCHLORIDE AND ACETAMINOPHEN [Concomitant]
     Route: 048
     Dates: start: 20081101, end: 20081211
  5. SUCRALFATE [Concomitant]
     Route: 048
     Dates: start: 20081124, end: 20081125
  6. VITAMINS [Concomitant]
     Route: 048
     Dates: start: 20081110, end: 20081218

REACTIONS (2)
  - DEATH [None]
  - NEPHROPATHY TOXIC [None]
